FAERS Safety Report 14709943 (Version 2)
Quarter: 2018Q2

REPORT INFORMATION
  Report Type: Spontaneous
  Country: GR (occurrence: GR)
  Receive Date: 20180403
  Receipt Date: 20180523
  Transmission Date: 20180711
  Serious: Yes (Other)
  Sender: FDA-Public Use
  Company Number: GR-ALLERGAN-1816120US

PATIENT
  Age: 40 Year
  Sex: Female

DRUGS (1)
  1. OZURDEX [Suspect]
     Active Substance: DEXAMETHASONE
     Indication: MACULAR OEDEMA
     Dosage: 0.7 MG, SINGLE
     Route: 031
     Dates: start: 20161215, end: 20161215

REACTIONS (5)
  - Hypotony of eye [Recovered/Resolved]
  - Vitreous loss [Unknown]
  - Choroidal detachment [Recovered/Resolved]
  - Off label use [Unknown]
  - Scleral disorder [Unknown]

NARRATIVE: CASE EVENT DATE: 20161216
